FAERS Safety Report 12384042 (Version 3)
Quarter: 2016Q3

REPORT INFORMATION
  Report Type: Spontaneous
  Country: US (occurrence: US)
  Receive Date: 20160519
  Receipt Date: 20160706
  Transmission Date: 20161109
  Serious: Yes (Hospitalization, Other)
  Sender: FDA-Public Use
  Company Number: US-009507513-1605USA006802

PATIENT
  Age: 85 Year
  Sex: Male
  Weight: 60.5 kg

DRUGS (4)
  1. CUBICIN [Suspect]
     Active Substance: DAPTOMYCIN
     Dosage: UNK
     Route: 042
     Dates: start: 201504, end: 201505
  2. CUBICIN [Suspect]
     Active Substance: DAPTOMYCIN
     Indication: OSTEOMYELITIS CHRONIC
     Dosage: UNK
     Dates: start: 20150902, end: 20150922
  3. INVANZ [Concomitant]
     Active Substance: ERTAPENEM SODIUM
     Indication: PNEUMONIA
     Dosage: UNK, QD
     Route: 042
     Dates: start: 20150909, end: 20150922
  4. LEVOFLOXACIN. [Concomitant]
     Active Substance: LEVOFLOXACIN
     Indication: PNEUMONIA
     Dosage: UNK, QD
     Route: 042
     Dates: start: 20150909, end: 20150922

REACTIONS (3)
  - Eosinophilic pneumonia [Recovered/Resolved]
  - Pleural effusion [Unknown]
  - Hiatus hernia [Unknown]

NARRATIVE: CASE EVENT DATE: 201509
